FAERS Safety Report 5976040-8 (Version None)
Quarter: 2008Q4

REPORT INFORMATION
  Report Type: 
  Country: None (occurrence: None)
  Receive Date: 20081202
  Receipt Date: 20081121
  Transmission Date: 20090506
  Serious: Yes (Hospitalization, Other)
  Sender: FDA-Public Use
  Company Number: CN-ROCHE-595119

PATIENT
  Sex: Male
  Weight: 60 kg

DRUGS (6)
  1. CELLCEPT [Suspect]
     Indication: RENAL TRANSPLANT
     Route: 048
     Dates: start: 20060101
  2. ROCALTROL [Suspect]
     Indication: CALCIUM DEFICIENCY
     Dosage: DOSING FREQUENCY REPORTED AS 0.25 UG PER SEVERAL DAYS
     Route: 048
     Dates: start: 19910101, end: 20060101
  3. ROCALTROL [Suspect]
     Route: 048
     Dates: start: 20060101
  4. PREDNISONE TAB [Suspect]
     Indication: RENAL TRANSPLANT
     Route: 065
     Dates: start: 19910101
  5. FK506 [Concomitant]
     Indication: RENAL TRANSPLANT
     Route: 048
     Dates: start: 20060101
  6. MEDROL [Concomitant]
     Indication: RENAL TRANSPLANT
     Route: 048
     Dates: start: 20060101

REACTIONS (5)
  - DYSPEPSIA [None]
  - GASTROOESOPHAGEAL REFLUX DISEASE [None]
  - MUSCLE SPASMS [None]
  - OSTEONECROSIS [None]
  - RENAL FAILURE [None]
